FAERS Safety Report 9854694 (Version 2)
Quarter: 2014Q1

REPORT INFORMATION
  Report Type: Other
  Country: IT (occurrence: IT)
  Receive Date: 20140130
  Receipt Date: 20140130
  Transmission Date: 20141002
  Serious: Yes (Hospitalization, Other)
  Sender: FDA-Public Use
  Company Number: IT-SUN PHARMACEUTICAL INDUSTRIES LTD-2014SUN00065

PATIENT
  Sex: 0

DRUGS (3)
  1. OXALIPLATINO SUN 5 MG/ML, CONCENTRATO PER SOLUZIONE PER INFUSIONE [Suspect]
     Indication: COLON CANCER METASTATIC
     Dosage: 130 MG, UNK
     Route: 042
     Dates: start: 20130722, end: 20131111
  2. AVASTIN - 1 FLACONCINO DA 400 MG DI CONCENTRATO PER SOLUZIONE PER INFU [Suspect]
     Indication: COLON CANCER METASTATIC
     Dosage: 330 MG, UNK
     Route: 042
     Dates: start: 20130722, end: 20131111
  3. XELODA - 500 MG 120 COMPRESSE FILMRIVESTITE IN BLISTER USO ORALE [Suspect]
     Indication: COLON CANCER METASTATIC
     Dosage: 2500 MG, QD
     Route: 048
     Dates: start: 20130722, end: 20131125

REACTIONS (2)
  - Deep vein thrombosis [Unknown]
  - Thrombosis [Unknown]
